FAERS Safety Report 9536087 (Version 1)
Quarter: 2013Q2

REPORT INFORMATION
  Report Type: Spontaneous
  Country: US (occurrence: None)
  Receive Date: 20130507
  Receipt Date: 20130507
  Transmission Date: 20140414
  Serious: Yes (Other)
  Sender: FDA-Public Use
  Company Number: PHEH2012US04319

PATIENT
  Age: 46 None
  Sex: Female
  Weight: 46.7 kg

DRUGS (2)
  1. AFINITOR [Suspect]
     Indication: CHORDOMA
     Dates: end: 201205
  2. GLEEVEC (IMATINIB) UNKNOWN [Suspect]
     Indication: CHORDOMA

REACTIONS (1)
  - Disease progression [None]
